FAERS Safety Report 13450513 (Version 11)
Quarter: 2018Q1

REPORT INFORMATION
  Report Type: Spontaneous
  Country: JP (occurrence: JP)
  Receive Date: 20170418
  Receipt Date: 20180207
  Transmission Date: 20180508
  Serious: Yes (Death, Life-Threatening, Hospitalization, Other)
  Sender: FDA-Public Use
  Company Number: JP-009507513-1703JPN002637J

PATIENT
  Age: 81 Year
  Sex: Male
  Weight: 56.2 kg

DRUGS (12)
  1. ROZEREM [Concomitant]
     Active Substance: RAMELTEON
     Dosage: 8.0 MG, QD
     Route: 048
     Dates: start: 20170323, end: 20170411
  2. TAMSULOSIN HYDROCHLORIDE OD [Concomitant]
     Active Substance: TAMSULOSIN HYDROCHLORIDE
     Dosage: 0.2 MG, QD
     Route: 048
     Dates: end: 20170411
  3. NEXIUM [Concomitant]
     Active Substance: ESOMEPRAZOLE MAGNESIUM
     Dosage: 20 MG, QD
     Route: 048
     Dates: end: 20170411
  4. CANDESARTAN. [Concomitant]
     Active Substance: CANDESARTAN
     Dosage: 8.0 MG, QD
     Route: 048
     Dates: end: 20170411
  5. NAUZELIN [Concomitant]
     Active Substance: DOMPERIDONE
     Dosage: 10.0 MG, TID
     Route: 048
     Dates: end: 20170331
  6. SENNOSIDE [Concomitant]
     Active Substance: SENNOSIDES
     Dosage: 12.0 MG, QD
     Route: 048
     Dates: end: 20170406
  7. LIXIANA [Concomitant]
     Active Substance: EDOXABAN TOSYLATE
     Dosage: 30 MG, QD
     Route: 048
     Dates: end: 20170411
  8. MAGMITT [Concomitant]
     Active Substance: MAGNESIUM OXIDE
     Dosage: 250 MG, TID
     Route: 048
     Dates: end: 20170327
  9. TOCOPHEROL NICOTINATE [Concomitant]
     Active Substance: TOCOPHERYL NICOTINATE, D-.ALPHA.
     Dosage: 100 MG, TID
     Route: 048
     Dates: end: 20170317
  10. AVOLVE [Concomitant]
     Active Substance: DUTASTERIDE
     Dosage: 0.5 MG, QD
     Route: 048
     Dates: end: 20170411
  11. KEYTRUDA [Suspect]
     Active Substance: PEMBROLIZUMAB
     Indication: SQUAMOUS CELL CARCINOMA OF LUNG
     Dosage: 200 MG, Q3W
     Route: 041
     Dates: start: 20170322, end: 20170412
  12. VERAPAMIL HYDROCHLORIDE. [Concomitant]
     Active Substance: VERAPAMIL HYDROCHLORIDE
     Dosage: 40.0 MG, TID
     Route: 048
     Dates: end: 20170331

REACTIONS (12)
  - Delirium [Not Recovered/Not Resolved]
  - Hemiplegia [Not Recovered/Not Resolved]
  - Hypercalcaemia [Recovered/Resolved]
  - Bronchostenosis [Recovered/Resolved]
  - Cerebral infarction [Not Recovered/Not Resolved]
  - Melaena [Recovered/Resolved]
  - Malignant neoplasm progression [Not Recovered/Not Resolved]
  - Pyrexia [Not Recovered/Not Resolved]
  - Hypocalcaemia [Not Recovered/Not Resolved]
  - Cheyne-Stokes respiration [Not Recovered/Not Resolved]
  - Cardiac failure [Not Recovered/Not Resolved]
  - Pneumonia [Fatal]

NARRATIVE: CASE EVENT DATE: 20170323
